FAERS Safety Report 4291788-1 (Version None)
Quarter: 2004Q1

REPORT INFORMATION
  Report Type: 
  Country: None (occurrence: None)
  Receive Date: 20040211
  Receipt Date: 20030414
  Transmission Date: 20041129
  Serious: No
  Sender: FDA-Public Use
  Company Number: US-GLAXOSMITHKLINE-A0404829A

PATIENT
  Age: 31 Year
  Sex: Female
  Weight: 61.4 kg

DRUGS (3)
  1. IMITREX [Suspect]
     Indication: HEADACHE
     Route: 065
  2. LUPRON DEPOT [Concomitant]
  3. ZOLOFT [Concomitant]

REACTIONS (1)
  - DRUG INEFFECTIVE [None]
